FAERS Safety Report 7955995-6 (Version None)
Quarter: 2011Q4

REPORT INFORMATION
  Report Type: 
  Country: None (occurrence: None)
  Receive Date: 20111205
  Receipt Date: 20111128
  Transmission Date: 20120403
  Serious: No
  Sender: FDA-Public Use
  Company Number: US-BIOGENIDEC-2011BI045267

PATIENT
  Age: 21 Year
  Sex: Female

DRUGS (4)
  1. AVONEX [Suspect]
     Route: 030
     Dates: start: 20030101, end: 20030101
  2. AVONEX [Suspect]
     Route: 030
     Dates: start: 20030101, end: 20090101
  3. AMBIEN [Concomitant]
     Indication: INSOMNIA
     Route: 048
     Dates: start: 20030101, end: 20090101
  4. AVONEX [Suspect]
     Indication: MULTIPLE SCLEROSIS
     Route: 030
     Dates: start: 19961019, end: 20030101

REACTIONS (3)
  - INSOMNIA [None]
  - FATIGUE [None]
  - INFLUENZA LIKE ILLNESS [None]
